FAERS Safety Report 17753155 (Version 2)
Quarter: 2021Q2

REPORT INFORMATION
  Report Type: Spontaneous
  Country: US (occurrence: US)
  Receive Date: 20200506
  Receipt Date: 20210505
  Transmission Date: 20210716
  Serious: No
  Sender: FDA-Public Use
  Company Number: US-ROCHE-2505834

PATIENT
  Sex: Female

DRUGS (2)
  1. ESBRIET [Suspect]
     Active Substance: PIRFENIDONE
     Dosage: 2 TABLET 3 TIMES A DAY
     Route: 048
     Dates: start: 201711
  2. ESBRIET [Suspect]
     Active Substance: PIRFENIDONE
     Indication: PRODUCT USED FOR UNKNOWN INDICATION
     Route: 048
     Dates: start: 201812

REACTIONS (2)
  - No adverse event [Unknown]
  - Off label use [Unknown]
